FAERS Safety Report 10079371 (Version 4)
Quarter: 2014Q3

REPORT INFORMATION
  Report Type: Report from Study
  Country: FR (occurrence: FR)
  Receive Date: 20140415
  Receipt Date: 20140704
  Transmission Date: 20150326
  Serious: Yes (Hospitalization)
  Sender: FDA-Public Use
  Company Number: PHHY2014FR045329

PATIENT
  Age: 10 Year
  Sex: Female
  Weight: 36 kg

DRUGS (9)
  1. ICL670A [Suspect]
     Active Substance: DEFERASIROX
     Indication: IRON OVERLOAD
     Dosage: 20 MG/KG, PER DAY
     Route: 048
     Dates: start: 20070514
  2. ORACILLINE [Concomitant]
     Active Substance: PENICILLIN V
     Dosage: 1000000 IU, BID
     Dates: start: 2006
  3. FOLIC ACID. [Concomitant]
     Active Substance: FOLIC ACID
     Dates: start: 2006
  4. ICL670A [Suspect]
     Active Substance: DEFERASIROX
     Dosage: 22 MG/KG, PER DAY
     Dates: start: 20121219
  5. ICL670A [Suspect]
     Active Substance: DEFERASIROX
     Dosage: 34 MG/KG, PER DAY
     Dates: start: 20130620, end: 20131009
  6. RUBOZINC [Concomitant]
     Dates: start: 2006
  7. ICL670A [Suspect]
     Active Substance: DEFERASIROX
     Dosage: 25 MG/KG, PER DAY
     Dates: start: 20120627
  8. ICL670A [Suspect]
     Active Substance: DEFERASIROX
     Dosage: 25 MG/KG, PER DAY
     Route: 048
     Dates: start: 20100604
  9. HYDREA [Concomitant]
     Active Substance: HYDROXYUREA
     Dates: start: 20100215, end: 20100526

REACTIONS (3)
  - Hepatomegaly [Recovered/Resolved]
  - Hepatocellular injury [Recovered/Resolved]
  - Hepatic pain [Recovered/Resolved]

NARRATIVE: CASE EVENT DATE: 20130828
